FAERS Safety Report 11377491 (Version 1)
Quarter: 2015Q3

REPORT INFORMATION
  Report Type: Spontaneous
  Country: US (occurrence: US)
  Receive Date: 20150811
  Receipt Date: 20150811
  Transmission Date: 20151125
  Serious: No
  Sender: FDA-Public Use
  Company Number: US-ELI_LILLY_AND_COMPANY-US200902001261

PATIENT
  Sex: Female

DRUGS (2)
  1. HUMULIN R [Suspect]
     Active Substance: INSULIN HUMAN
     Indication: TYPE 2 DIABETES MELLITUS
  2. HUMULIN N [Suspect]
     Active Substance: INSULIN HUMAN
     Indication: TYPE 2 DIABETES MELLITUS

REACTIONS (6)
  - Macular degeneration [Not Recovered/Not Resolved]
  - Nerve compression [Not Recovered/Not Resolved]
  - Spinal compression fracture [Not Recovered/Not Resolved]
  - Lower respiratory tract infection [Recovered/Resolved]
  - Back disorder [Not Recovered/Not Resolved]
  - Diabetic eye disease [Not Recovered/Not Resolved]

NARRATIVE: CASE EVENT DATE: 2006
